FAERS Safety Report 20102800 (Version 1)
Quarter: 2021Q4

REPORT INFORMATION
  Report Type: Spontaneous
  Country: US (occurrence: US)
  Receive Date: 20211123
  Receipt Date: 20211123
  Transmission Date: 20220303
  Serious: Yes (Other)
  Sender: FDA-Public Use
  Company Number: US-PFIZER INC-202101564651

PATIENT
  Age: 81 Year
  Sex: Male

DRUGS (2)
  1. VYNDAMAX [Suspect]
     Active Substance: TAFAMIDIS
     Dosage: 61 MG
  2. INSULIN NOS [Concomitant]
     Active Substance: INSULIN NOS
     Dosage: UNK

REACTIONS (28)
  - Autoimmune thyroiditis [Unknown]
  - Arteriosclerosis coronary artery [Unknown]
  - Retinal detachment [Unknown]
  - Cataract [Unknown]
  - Diabetes mellitus [Unknown]
  - Tendon rupture [Unknown]
  - Hip fracture [Unknown]
  - Deep vein thrombosis [Unknown]
  - Chondrocalcinosis [Unknown]
  - Chest pain [Unknown]
  - Hypercholesterolaemia [Unknown]
  - Microalbuminuria [Unknown]
  - Epicondylitis [Unknown]
  - Essential hypertension [Unknown]
  - Arthralgia [Unknown]
  - Herpes zoster [Unknown]
  - Adrenal disorder [Unknown]
  - Oedema peripheral [Unknown]
  - Vitamin D deficiency [Unknown]
  - Cognitive disorder [Unknown]
  - Osteoarthritis [Unknown]
  - Intervertebral disc degeneration [Unknown]
  - Lumbar spinal stenosis [Unknown]
  - Sleep disorder [Unknown]
  - Endocrine hypertension [Unknown]
  - Large intestinal polypectomy [Unknown]
  - Arthritis [Unknown]
  - Gastritis [Unknown]
